FAERS Safety Report 6154861-9 (Version None)
Quarter: 2009Q2

REPORT INFORMATION
  Report Type: 
  Country: None (occurrence: None)
  Receive Date: 20090414
  Receipt Date: 20090402
  Transmission Date: 20091009
  Serious: Yes (Other)
  Sender: FDA-Public Use
  Company Number: US-PFIZER INC-2009170610

PATIENT
  Sex: Female
  Weight: 240 kg

DRUGS (19)
  1. CHANTIX [Suspect]
     Indication: SMOKING CESSATION THERAPY
     Dosage: 1 MG, 2X/DAY
  2. FIORICET W/ CODEINE [Concomitant]
     Dosage: UNK
  3. RANITIDINE [Concomitant]
     Indication: GASTROOESOPHAGEAL REFLUX DISEASE
     Dosage: UNK
  4. PROTONIX [Concomitant]
     Indication: GASTROOESOPHAGEAL REFLUX DISEASE
     Dosage: UNK
  5. LASIX [Concomitant]
     Dosage: UNK
  6. BETHANECHOL [Concomitant]
     Indication: URINARY RETENTION
     Dosage: 25 MG, 4X/DAY
  7. PERCOCET [Concomitant]
     Dosage: UNK
  8. TRICOR [Concomitant]
     Dosage: UNK
  9. COMPAZINE [Concomitant]
     Dosage: UNK
  10. ZOFRAN [Concomitant]
     Indication: NAUSEA
     Dosage: UNK
  11. REGLAN [Concomitant]
     Indication: NAUSEA
     Dosage: UNK
  12. TOPAMAX [Concomitant]
     Dosage: UNK
  13. ENALAPRIL [Concomitant]
     Dosage: UNK
  14. SIMVASTATIN [Concomitant]
     Dosage: UNK
  15. LEVOTHYROXINE [Concomitant]
     Indication: HYPOTHYROIDISM
     Dosage: UNK
  16. SERTRALINE [Concomitant]
     Dosage: 200 MG, 1X/DAY
  17. HUMALOG [Concomitant]
     Indication: DIABETES MELLITUS
     Dosage: UNK
  18. LANTUS [Concomitant]
     Indication: DIABETES MELLITUS
     Dosage: UNK
  19. KLONOPIN [Concomitant]
     Indication: BIPOLAR I DISORDER

REACTIONS (5)
  - BIPOLAR I DISORDER [None]
  - BLOOD GLUCOSE DECREASED [None]
  - DIABETES MELLITUS INADEQUATE CONTROL [None]
  - GASTROOESOPHAGEAL REFLUX DISEASE [None]
  - URINARY TRACT INFECTION [None]
